FAERS Safety Report 15119888 (Version 1)
Quarter: 2018Q3

REPORT INFORMATION
  Report Type: Spontaneous
  Country: FR (occurrence: FR)
  Receive Date: 20180709
  Receipt Date: 20180709
  Transmission Date: 20181010
  Serious: Yes (Hospitalization)
  Sender: FDA-Public Use
  Company Number: PHHY2018FR038168

PATIENT
  Age: 87 Year
  Sex: Male
  Weight: 85 kg

DRUGS (7)
  1. PARACETAMOL [Suspect]
     Active Substance: ACETAMINOPHEN
     Indication: PAIN
     Dosage: UNK (NON RENSEIGNEE)
     Route: 048
  2. AMOXICILLIN. [Suspect]
     Active Substance: AMOXICILLIN
     Indication: BRONCHITIS
     Dosage: UNK (NON RENSEIGNEE)
     Route: 048
  3. PYOSTACINE [Suspect]
     Active Substance: PRISTINAMYCIN
     Indication: BRONCHITIS
     Dosage: 3 G, QD
     Route: 048
     Dates: start: 20180129, end: 20180205
  4. AMIODARONE [Concomitant]
     Active Substance: AMIODARONE
     Indication: ATRIAL FIBRILLATION
     Dosage: 200 MG, QD (0?0?1 SAUF SAMEDI ET DIMANCHE)
     Route: 048
  5. TWYNSTA [Concomitant]
     Active Substance: AMLODIPINE BESYLATE\TELMISARTAN
     Indication: HYPERTENSION
     Dosage: 1 DF, QD (1?0?0)
     Route: 048
  6. SIMVASTATINE [Concomitant]
     Active Substance: SIMVASTATIN
     Indication: HYPERCHOLESTEROLAEMIA
     Dosage: UNK (NON RENSEIGN?E)
     Route: 048
  7. ELIQUIS [Concomitant]
     Active Substance: APIXABAN
     Indication: ATRIAL FIBRILLATION
     Dosage: 10 MG, BID (1?0?1)
     Route: 048

REACTIONS (2)
  - Hepatitis cholestatic [Recovering/Resolving]
  - Rash [Recovering/Resolving]

NARRATIVE: CASE EVENT DATE: 20180201
